FAERS Safety Report 6231118-9 (Version None)
Quarter: 2009Q2

REPORT INFORMATION
  Report Type: 
  Country: None (occurrence: None)
  Receive Date: 20090611
  Receipt Date: 20090528
  Transmission Date: 20091009
  Serious: Yes (Death)
  Sender: FDA-Public Use
  Company Number: 2009001616

PATIENT
  Age: 65 Year
  Sex: Female

DRUGS (9)
  1. ERLOTINIB (ERLOTINIB) (TABLET) (ERLOTINIB) [Suspect]
     Indication: NON-SMALL CELL LUNG CANCER
     Dosage: (1590 MG,QD), ORAL
     Route: 048
     Dates: start: 20070613, end: 20071010
  2. CIPROFLOXACIN [Concomitant]
  3. AMBROXOL (AMBROXOL) [Concomitant]
  4. AMLODIPINE [Concomitant]
  5. CELECOXIB [Concomitant]
  6. FLUOXETINE [Concomitant]
  7. RANITIDINE [Concomitant]
  8. TIROPRAMIDE (TIROPRAMIDE) [Concomitant]
  9. ULTRACET [Concomitant]

REACTIONS (2)
  - PLEURAL EFFUSION [None]
  - PNEUMONIA [None]
